FAERS Safety Report 6784128-7 (Version None)
Quarter: 2010Q2

REPORT INFORMATION
  Report Type: 
  Country: None (occurrence: None)
  Receive Date: 20100622
  Receipt Date: 20100611
  Transmission Date: 20101027
  Serious: Yes (Death, Hospitalization)
  Sender: FDA-Public Use
  Company Number: US-PFIZER INC-2010074076

PATIENT
  Sex: Female

DRUGS (2)
  1. REVATIO [Suspect]
     Indication: SYSTEMIC SCLEROSIS
     Dosage: 20 MG, 3X/DAY
  2. REVATIO [Suspect]
     Indication: SYSTEMIC LUPUS ERYTHEMATOSUS

REACTIONS (1)
  - DEATH [None]
